FAERS Safety Report 5042617-X (Version None)
Quarter: 2006Q3

REPORT INFORMATION
  Report Type: 
  Country: None (occurrence: None)
  Receive Date: 20060705
  Receipt Date: 20060623
  Transmission Date: 20061208
  Serious: Yes (Other)
  Sender: FDA-Public Use
  Company Number: PHEH2006US08195

PATIENT
  Age: 62 Year
  Sex: Male

DRUGS (2)
  1. SUNITINIB MALATE [Concomitant]
  2. ZOMETA [Suspect]
     Dosage: UNK Q3WKS
     Dates: start: 20050401

REACTIONS (1)
  - OSTEONECROSIS [None]
